FAERS Safety Report 24584074 (Version 2)
Quarter: 2025Q3

REPORT INFORMATION
  Report Type: Report from Study
  Country: US (occurrence: US)
  Receive Date: 20241106
  Receipt Date: 20250803
  Transmission Date: 20251020
  Serious: Yes (Hospitalization, Other)
  Sender: ALEXION PHARMACEUTICALS
  Company Number: US-AstraZeneca-CH-00726137A

PATIENT
  Sex: Female

DRUGS (1)
  1. EXENATIDE [Suspect]
     Active Substance: EXENATIDE

REACTIONS (6)
  - Fall [Unknown]
  - Hip fracture [Unknown]
  - Multiple fractures [Unknown]
  - Knee arthroplasty [Unknown]
  - Lower limb fracture [Unknown]
  - Product use issue [Unknown]
